FAERS Safety Report 10332441 (Version 1)
Quarter: 2014Q3

REPORT INFORMATION
  Report Type: Report from Study
  Country: US (occurrence: US)
  Receive Date: 20140722
  Receipt Date: 20140722
  Transmission Date: 20150326
  Serious: Yes (Death)
  Sender: FDA-Public Use
  Company Number: US-BRISTOL-MYERS SQUIBB COMPANY-21196134

PATIENT
  Age: 66 Year
  Sex: Male
  Weight: 88.89 kg

DRUGS (1)
  1. YERVOY [Suspect]
     Active Substance: IPILIMUMAB
     Indication: MALIGNANT MELANOMA
     Dosage: LOT:923771 EXP:30AUG15 50MG, YERVOY 215 MG RECEIVED ONE CYCLE ON 18JUN14.
     Dates: start: 20140618

REACTIONS (1)
  - Death [Fatal]
